FAERS Safety Report 9201930 (Version 1)
Quarter: 2013Q2

REPORT INFORMATION
  Report Type: Spontaneous
  Country: FR (occurrence: FR)
  Receive Date: 20130401
  Receipt Date: 20130401
  Transmission Date: 20140414
  Serious: Yes (Hospitalization)
  Sender: FDA-Public Use
  Company Number: FR-ROCHE-1206442

PATIENT
  Age: 70 Year
  Sex: Male

DRUGS (14)
  1. ROCEPHINE [Suspect]
     Indication: PRODUCT USED FOR UNKNOWN INDICATION
     Route: 042
     Dates: start: 20130203, end: 20130205
  2. ROVAMYCINE [Suspect]
     Route: 042
     Dates: start: 20130203, end: 20130205
  3. TAVANIC [Suspect]
     Indication: PRODUCT USED FOR UNKNOWN INDICATION
     Route: 048
     Dates: start: 20130203, end: 20130205
  4. HYPNOVEL (INJ) [Concomitant]
     Route: 042
     Dates: start: 20130203, end: 20130206
  5. TAMIFLU [Concomitant]
     Route: 048
     Dates: start: 20130205, end: 20130212
  6. ZANIDIP [Concomitant]
     Route: 048
  7. INDOCID [Concomitant]
     Route: 054
  8. COAPROVEL [Concomitant]
     Route: 048
  9. TEMERIT [Concomitant]
     Route: 048
  10. CLAMOXYL (FRANCE) [Concomitant]
     Route: 042
     Dates: start: 20130206, end: 20130208
  11. FUROSEMIDE [Concomitant]
     Route: 042
     Dates: start: 20130203, end: 20130212
  12. CISATRACURIUM [Concomitant]
     Route: 042
     Dates: start: 20130203, end: 20130206
  13. INIPOMP [Concomitant]
     Route: 065
     Dates: start: 20130204, end: 20130212
  14. LOXEN [Concomitant]

REACTIONS (2)
  - Rhabdomyolysis [Recovered/Resolved]
  - Renal failure acute [Recovered/Resolved]
